FAERS Safety Report 13044674 (Version 1)
Quarter: 2016Q4

REPORT INFORMATION
  Report Type: Spontaneous
  Country: US (occurrence: US)
  Receive Date: 20161220
  Receipt Date: 20161220
  Transmission Date: 20170207
  Serious: No
  Sender: FDA-Public Use
  Company Number: US-ROCHE-1048474

PATIENT
  Age: 57 Year
  Sex: Male
  Weight: 83.99 kg

DRUGS (2)
  1. ZELBORAF [Suspect]
     Active Substance: VEMURAFENIB
     Indication: METASTATIC MALIGNANT MELANOMA
     Route: 048
  2. STEROID (NAME UNKNOWN) [Concomitant]
     Route: 048

REACTIONS (5)
  - Sunburn [Unknown]
  - Alopecia [Unknown]
  - Arthralgia [Unknown]
  - Swelling face [Not Recovered/Not Resolved]
  - Squamous cell carcinoma of skin [Recovered/Resolved]

NARRATIVE: CASE EVENT DATE: 20120920
